FAERS Safety Report 9464034 (Version 3)
Quarter: 2013Q3

REPORT INFORMATION
  Report Type: Spontaneous
  Country: US (occurrence: US)
  Receive Date: 20130819
  Receipt Date: 20130917
  Transmission Date: 20140515
  Serious: Yes (Death)
  Sender: FDA-Public Use
  Company Number: US-MERCK-1308USA006015

PATIENT
  Sex: Male

DRUGS (1)
  1. TEMODAR [Suspect]
     Route: 048

REACTIONS (1)
  - Death [Fatal]
